FAERS Safety Report 11144506 (Version 1)
Quarter: 2015Q2

REPORT INFORMATION
  Report Type: Spontaneous
  Country: US (occurrence: None)
  Receive Date: 20150526
  Receipt Date: 20150526
  Transmission Date: 20150821
  Serious: Yes (Disabling)
  Sender: FDA-Public Use
  Company Number: None

PATIENT
  Age: 38 Year
  Sex: Male
  Weight: 245 kg

DRUGS (5)
  1. LEVAQUIN [Suspect]
     Active Substance: LEVOFLOXACIN
     Indication: SINUSITIS
     Dosage: 1  ONCE DAILY TAKEN BY MOUTH
     Route: 048
     Dates: start: 20150219, end: 20150228
  2. NEUROTIN [Concomitant]
     Active Substance: GABAPENTIN
  3. FLEXERIL [Concomitant]
     Active Substance: CYCLOBENZAPRINE HYDROCHLORIDE
  4. LORITAB [Concomitant]
  5. MAGNESIUM SUPPLEMENT [Concomitant]

REACTIONS (5)
  - Burning sensation [None]
  - Arthralgia [None]
  - Musculoskeletal discomfort [None]
  - Gait disturbance [None]
  - Pain in extremity [None]

NARRATIVE: CASE EVENT DATE: 20150331
